FAERS Safety Report 18239566 (Version 4)
Quarter: 2020Q4

REPORT INFORMATION
  Report Type: Other
  Country: US (occurrence: US)
  Receive Date: 20200907
  Receipt Date: 20201123
  Transmission Date: 20210113
  Serious: Yes (Other)
  Sender: FDA-Public Use
  Company Number: US-ROCHE-2669888

PATIENT
  Sex: Female

DRUGS (25)
  1. DELTASONE [Concomitant]
     Active Substance: PREDNISONE
     Dosage: 30 MG BY MOUTH DAILY
     Route: 048
  2. RITUXIMAB. [Suspect]
     Active Substance: RITUXIMAB
     Indication: PEMPHIGOID
  3. CELLCEPT [Suspect]
     Active Substance: MYCOPHENOLATE MOFETIL\MYCOPHENOLATE MOFETIL HYDROCHLORIDE
     Route: 048
  4. CELLCEPT [Suspect]
     Active Substance: MYCOPHENOLATE MOFETIL\MYCOPHENOLATE MOFETIL HYDROCHLORIDE
  5. SYNTHROID [Concomitant]
     Active Substance: LEVOTHYROXINE SODIUM
     Dosage: 75 MCG TAB BY MOUTH DAILY
     Route: 048
  6. PROTONIX [Concomitant]
     Active Substance: PANTOPRAZOLE SODIUM
     Dosage: TAKE 40 MG BY MOUTH EVERY MORNING
     Route: 048
  7. COMPAZINE [Concomitant]
     Active Substance: PROCHLORPERAZINE MALEATE
     Indication: NAUSEA
     Dosage: 10 MG TAB BY MOUTH EVERY 6 (SIX) HOURS AS NEEDED
     Route: 048
  8. RITUXIMAB. [Suspect]
     Active Substance: RITUXIMAB
     Indication: PARANEOPLASTIC PEMPHIGUS
  9. CELLCEPT [Suspect]
     Active Substance: MYCOPHENOLATE MOFETIL\MYCOPHENOLATE MOFETIL HYDROCHLORIDE
     Indication: PEMPHIGUS
     Route: 048
  10. HYDROCHLOROTHIAZIDE. [Concomitant]
     Active Substance: HYDROCHLOROTHIAZIDE
     Route: 048
  11. LINZESS [Concomitant]
     Active Substance: LINACLOTIDE
     Dosage: TAKE 290 MCG BY MOUTH DAILY
     Route: 048
  12. CELLCEPT [Suspect]
     Active Substance: MYCOPHENOLATE MOFETIL\MYCOPHENOLATE MOFETIL HYDROCHLORIDE
     Indication: PEMPHIGUS
     Dosage: 200 MG/ML?INCREASING TO 100 MG AS TOLERATED
     Route: 048
  13. ZOFRAN [Concomitant]
     Active Substance: ONDANSETRON HYDROCHLORIDE
     Indication: VOMITING
  14. ROXICODONE [Concomitant]
     Active Substance: OXYCODONE HYDROCHLORIDE
     Indication: PAIN
     Dosage: SOL 5 MG/ 5ML BY MOUTH VERY 4 (FOUR) HOURS AS NEEDED
     Route: 048
  15. CELLCEPT [Suspect]
     Active Substance: MYCOPHENOLATE MOFETIL\MYCOPHENOLATE MOFETIL HYDROCHLORIDE
  16. LIDOCAINE. [Concomitant]
     Active Substance: LIDOCAINE
  17. ZOFRAN [Concomitant]
     Active Substance: ONDANSETRON HYDROCHLORIDE
     Indication: NAUSEA
     Dosage: 4 MG TAB BY MOUTH EVERY 8 (EIGHT)] HOURS AS NEEDED
     Route: 048
  18. CYCLOPHOSPHAMIDE. [Concomitant]
     Active Substance: CYCLOPHOSPHAMIDE
  19. RITUXIMAB. [Suspect]
     Active Substance: RITUXIMAB
     Indication: CHRONIC LYMPHOCYTIC LEUKAEMIA
     Route: 065
  20. VITAMIN D3 [Concomitant]
     Active Substance: CHOLECALCIFEROL
     Dosage: 1000 MG-400 UNIT/30 ML TAKE BY MOUTH 2 (TWO) TIMES A DAY
     Route: 048
  21. POLYETHYLENE GLYCOL [Concomitant]
     Active Substance: POLYETHYLENE GLYCOLS
     Dosage: TAKE 17 GM BY MOUTH DAILY. 1 CAPFUL WITH WATER
     Route: 048
  22. FORTEO [Concomitant]
     Active Substance: TERIPARATIDE
     Dosage: INJECT UNDER THE SKIN DAILY
  23. IBUPROFEN. [Concomitant]
     Active Substance: IBUPROFEN
     Indication: PAIN
     Route: 048
  24. KAY CIEL [Concomitant]
     Active Substance: POTASSIUM CHLORIDE
     Dosage: TAKE BY MOUTH DAILY
     Route: 048
  25. KAY CIEL [Concomitant]
     Active Substance: POTASSIUM CHLORIDE
     Dosage: TAKE BY MOUTH BY MOUTH 2 (TWO) TIMES A DAY
     Route: 048

REACTIONS (6)
  - Immune system disorder [Unknown]
  - Therapeutic response decreased [Unknown]
  - Intentional product use issue [Unknown]
  - Oral infection [Unknown]
  - Product prescribing error [Unknown]
  - Off label use [Unknown]
